FAERS Safety Report 7962217-9 (Version None)
Quarter: 2011Q4

REPORT INFORMATION
  Report Type: 
  Country: None (occurrence: None)
  Receive Date: 20111207
  Receipt Date: 20111128
  Transmission Date: 20120403
  Serious: Yes (Other)
  Sender: FDA-Public Use
  Company Number: PHHY2011BR104895

PATIENT
  Sex: Female
  Weight: 84 kg

DRUGS (6)
  1. DIOVAN [Suspect]
     Indication: HYPERTENSION
     Dosage: 320 MG, PER DAY
     Route: 048
  2. METOPROLOL SUCCINATE [Suspect]
     Indication: HYPERTENSION
     Dosage: UNK
  3. SOMALGIN [Concomitant]
     Dosage: 1 DF,DAILY
     Route: 048
  4. CONCOR [Concomitant]
     Indication: BLOOD CHOLESTEROL
     Dosage: 10 MG, DAILY
     Route: 048
  5. CONCOR [Concomitant]
     Indication: HYPERTENSION
  6. DIOSMIN W/HESPERIDIN [Concomitant]
     Indication: VARICOSE VEIN
     Dosage: 1 DF,DAILY
     Route: 048

REACTIONS (2)
  - BLOOD PRESSURE INCREASED [None]
  - CEREBROVASCULAR ACCIDENT [None]
